FAERS Safety Report 6681851-X (Version None)
Quarter: 2010Q2

REPORT INFORMATION
  Report Type: 
  Country: None (occurrence: None)
  Receive Date: 20100414
  Receipt Date: 20100406
  Transmission Date: 20101027
  Serious: No
  Sender: FDA-Public Use
  Company Number: US-GILEAD-2010-0028401

PATIENT
  Sex: Female
  Weight: 69.008 kg

DRUGS (17)
  1. LETAIRIS [Suspect]
     Indication: PULMONARY ARTERIAL HYPERTENSION
     Route: 048
     Dates: start: 20100301
  2. FUROSEMIDE [Concomitant]
  3. ASPIRIN [Concomitant]
  4. LISINOPRIL [Concomitant]
  5. METOPROLOL TARTRATE [Concomitant]
  6. NIFEDIPINE [Concomitant]
  7. HYDRALAZINE HCL [Concomitant]
  8. PANTOPRAZOLE [Concomitant]
  9. XANAX [Concomitant]
  10. SERTRALINE HCL [Concomitant]
  11. TEKTURNA [Concomitant]
  12. FENTANYL [Concomitant]
  13. POTASSIUM CHLORIDE [Concomitant]
  14. MULTI-VITAMIN [Concomitant]
  15. MIRALAX [Concomitant]
  16. VYTORIN [Concomitant]
  17. CALCIUM [Concomitant]

REACTIONS (4)
  - DYSPNOEA [None]
  - FATIGUE [None]
  - SWELLING [None]
  - WEIGHT INCREASED [None]
